FAERS Safety Report 5710048-2 (Version None)
Quarter: 2008Q2

REPORT INFORMATION
  Report Type: 
  Country: None (occurrence: None)
  Receive Date: 20080418
  Receipt Date: 20071008
  Transmission Date: 20081010
  Serious: No
  Sender: FDA-Public Use
  Company Number: US-ASTRAZENECA-2007UW23308

PATIENT
  Age: 38 Year
  Sex: Female
  Weight: 80.7 kg

DRUGS (8)
  1. METOPROLOL SUCCINATE [Suspect]
     Route: 048
  2. NEXIUM [Concomitant]
     Route: 048
  3. PLAQUENIL [Concomitant]
  4. TOPAMAX [Concomitant]
  5. LORTAB [Concomitant]
  6. SINGULAIR [Concomitant]
  7. ROZEREM [Concomitant]
  8. ASTELIN [Concomitant]

REACTIONS (3)
  - ABDOMINAL PAIN UPPER [None]
  - BACK PAIN [None]
  - DIARRHOEA [None]
